FAERS Safety Report 24923736 (Version 2)
Quarter: 2025Q1

REPORT INFORMATION
  Report Type: Spontaneous
  Country: US (occurrence: US)
  Receive Date: 20250204
  Receipt Date: 20250217
  Transmission Date: 20250409
  Serious: No
  Sender: BAUSCH AND LOMB
  Company Number: US-BAUSCHBL-2025BNL001486

PATIENT
  Age: 8 Decade
  Sex: Female

DRUGS (1)
  1. XIIDRA [Suspect]
     Active Substance: LIFITEGRAST
     Indication: Product used for unknown indication
     Route: 047
     Dates: start: 202501

REACTIONS (4)
  - Dry eye [Unknown]
  - Eye pain [Unknown]
  - Product use complaint [Unknown]
  - Product container issue [Unknown]
